FAERS Safety Report 13563601 (Version 1)
Quarter: 2017Q2

REPORT INFORMATION
  Report Type: Report from Study
  Country: US (occurrence: US)
  Receive Date: 20170519
  Receipt Date: 20170519
  Transmission Date: 20170830
  Serious: Yes (Hospitalization)
  Sender: FDA-Public Use
  Company Number: US-EISAI MEDICAL RESEARCH-EC-2017-026985

PATIENT
  Age: 77 Year
  Sex: Female
  Weight: 50.34 kg

DRUGS (2)
  1. LENVIMA [Suspect]
     Active Substance: LENVATINIB
     Indication: THYROID CANCER
     Route: 048
     Dates: start: 20170414
  2. METOPROLOL. [Concomitant]
     Active Substance: METOPROLOL

REACTIONS (9)
  - Fatigue [Unknown]
  - Hypoaesthesia [Not Recovered/Not Resolved]
  - Hypertension [Not Recovered/Not Resolved]
  - Decreased appetite [Unknown]
  - Paraesthesia [Not Recovered/Not Resolved]
  - Blood calcium decreased [Not Recovered/Not Resolved]
  - Arthralgia [Unknown]
  - Stoma complication [Not Recovered/Not Resolved]
  - Weight decreased [Not Recovered/Not Resolved]

NARRATIVE: CASE EVENT DATE: 2017
